FAERS Safety Report 4458559-4 (Version None)
Quarter: 2004Q3

REPORT INFORMATION
  Report Type: 
  Country: None (occurrence: None)
  Receive Date: 20040922
  Receipt Date: 20031027
  Transmission Date: 20050211
  Serious: Yes (Other)
  Sender: FDA-Public Use
  Company Number: US-JNJFOC-20031006095

PATIENT
  Sex: Male

DRUGS (2)
  1. TOPAMAX [Suspect]
     Indication: EPILEPSY
     Dosage: 25 MG, 2 IN 1 DAY, ORAL
     Route: 048
     Dates: start: 20031001, end: 20031001
  2. UNSPECIFIED SEIZURE MEDICATIONS (ANTIEPILEPTICS) [Concomitant]

REACTIONS (2)
  - HALLUCINATION [None]
  - PSYCHOTIC DISORDER [None]
